FAERS Safety Report 4916528-1 (Version None)
Quarter: 2006Q1

REPORT INFORMATION
  Report Type: 
  Country: None (occurrence: None)
  Receive Date: 20060220
  Receipt Date: 20060206
  Transmission Date: 20060701
  Serious: Yes (Hospitalization, Disabling)
  Sender: FDA-Public Use
  Company Number: 2006SE00744

PATIENT
  Age: 23952 Day
  Sex: Male

DRUGS (2)
  1. PROVISACOR [Suspect]
     Indication: DYSLIPIDAEMIA
     Route: 048
     Dates: start: 20041101, end: 20051116
  2. TICLOPIDINE HCL [Concomitant]
     Route: 048

REACTIONS (3)
  - COMPARTMENT SYNDROME [None]
  - FASCIITIS [None]
  - RHABDOMYOLYSIS [None]
